FAERS Safety Report 8873946 (Version 1)
Quarter: 2012Q4

REPORT INFORMATION
  Report Type: 
  Country: CH (occurrence: CH)
  Receive Date: 20121030
  Receipt Date: 20121030
  Transmission Date: 20130627
  Serious: Yes (Other)
  Sender: FDA-Public Use
  Company Number: CH-009507513-1210CHE014034

PATIENT
  Sex: Female

DRUGS (1)
  1. TEMODAL [Suspect]
     Route: 048

REACTIONS (1)
  - Haemolysis [Unknown]
